FAERS Safety Report 11348486 (Version 1)
Quarter: 2015Q3

REPORT INFORMATION
  Report Type: Spontaneous
  Country: IT (occurrence: IT)
  Receive Date: 20150806
  Receipt Date: 20150806
  Transmission Date: 20151125
  Serious: Yes (Hospitalization)
  Sender: FDA-Public Use
  Company Number: IT-SA-2015SA114035

PATIENT
  Age: 26 Year
  Sex: Male

DRUGS (2)
  1. SOLOSTAR [Concomitant]
     Active Substance: DEVICE
     Indication: TYPE 1 DIABETES MELLITUS
  2. APIDRA SOLOSTAR [Suspect]
     Active Substance: INSULIN GLULISINE
     Indication: TYPE 1 DIABETES MELLITUS
     Route: 058

REACTIONS (2)
  - Head injury [Recovering/Resolving]
  - Hypoglycaemia [Recovering/Resolving]

NARRATIVE: CASE EVENT DATE: 20120705
